APPROVED DRUG PRODUCT: TOPICORT
Active Ingredient: DESOXIMETASONE
Strength: 0.05%
Dosage Form/Route: OINTMENT;TOPICAL
Application: N018594 | Product #001 | TE Code: AB
Applicant: TARO PHARMACEUTICAL INDUSTRIES LTD
Approved: Jan 17, 1985 | RLD: Yes | RS: Yes | Type: RX